FAERS Safety Report 8084610-9 (Version None)
Quarter: 2012Q1

REPORT INFORMATION
  Report Type: 
  Country: None (occurrence: None)
  Receive Date: 20120128
  Receipt Date: 20110330
  Transmission Date: 20120608
  Serious: No
  Sender: FDA-Public Use
  Company Number: US-ABBOTT-11P-163-0715282-00

PATIENT
  Age: 58 Year
  Sex: Female

DRUGS (24)
  1. HUMIRA [Suspect]
     Dates: start: 20110330
  2. METHOTREXATE [Concomitant]
     Indication: RHEUMATOID ARTHRITIS
  3. CYMBALTA [Concomitant]
     Indication: FIBROMYALGIA
  4. HUMIRA [Suspect]
     Indication: RHEUMATOID ARTHRITIS
     Dates: start: 20110126
  5. JUNUVIA [Concomitant]
     Indication: DIABETES MELLITUS
     Dates: start: 19940501, end: 19940501
  6. RHINOCORT [Concomitant]
     Indication: PRODUCT USED FOR UNKNOWN INDICATION
     Dosage: 32 MCG/ACT
  7. ALBUTEROL [Concomitant]
     Indication: ASTHMA
     Dosage: NEBULIZER
  8. PRILOSEC [Concomitant]
     Indication: PROPHYLAXIS
     Dates: start: 20080101
  9. SIMVASTATIN [Concomitant]
     Indication: BLOOD CHOLESTEROL INCREASED
     Dates: start: 19941201
  10. ZYRTEC [Concomitant]
     Indication: SEASONAL ALLERGY
  11. ADVAIR DISKETTS [Concomitant]
     Indication: PRODUCT USED FOR UNKNOWN INDICATION
     Dosage: TWO TIMES DAILY AS NEEDED
  12. KLONOPIN [Concomitant]
     Indication: ANXIETY
  13. MAXALT [Concomitant]
     Indication: MIGRAINE
  14. NORCO [Concomitant]
     Indication: ARTHRALGIA
     Dates: start: 20080101
  15. LIDODERM [Concomitant]
     Indication: PAIN
     Dosage: PATCHES
     Dates: start: 20090101
  16. ASTEPRO [Concomitant]
     Indication: PRODUCT USED FOR UNKNOWN INDICATION
     Route: 045
  17. ALBUTEROL [Concomitant]
     Indication: BRONCHITIS CHRONIC
  18. METFFORMIN HYDROCHLORIDE [Concomitant]
     Indication: DIABETES MELLITUS
     Dosage: 2 TABLETS IN AM, 1 TABLETS IN PM
     Dates: start: 19940501
  19. LEVOTHYROXINE SODIUM [Concomitant]
     Indication: HYPOTHYROIDISM
  20. CYMBALTA [Concomitant]
     Indication: DEPRESSION
  21. TOPAMAX [Concomitant]
     Indication: PROPHYLAXIS
  22. ALBUTEROL [Concomitant]
     Indication: WHEEZING
     Route: 055
  23. FENOFIBRATE (MICRONIZED) [Concomitant]
     Indication: BLOOD TRIGLYCERIDES
  24. ZYRTEC [Concomitant]
     Indication: ASTHMA

REACTIONS (8)
  - RHEUMATOID ARTHRITIS [None]
  - DEVICE MALFUNCTION [None]
  - INJECTION SITE ERYTHEMA [None]
  - INJECTION SITE PAIN [None]
  - INCORRECT DOSE ADMINISTERED [None]
  - PAIN [None]
  - MALAISE [None]
  - JOINT SWELLING [None]
